FAERS Safety Report 22224055 (Version 1)
Quarter: 2023Q2

REPORT INFORMATION
  Report Type: Spontaneous
  Country: FR (occurrence: FR)
  Receive Date: 20230418
  Receipt Date: 20230418
  Transmission Date: 20230721
  Serious: Yes (Other)
  Sender: FDA-Public Use
  Company Number: FR-009507513-2304FRA003651

PATIENT
  Age: 33 Year
  Sex: Female
  Weight: 59 kg

DRUGS (3)
  1. KEYTRUDA [Suspect]
     Active Substance: PEMBROLIZUMAB
     Dosage: 200 MILLIGRAM, CYCLICAL
     Route: 042
     Dates: start: 20220816, end: 202211
  2. CYTARABINE [Suspect]
     Active Substance: CYTARABINE
     Indication: Primary mediastinal large B-cell lymphoma
     Dosage: 2000 MG/M?
     Route: 042
     Dates: start: 20220816, end: 202210
  3. OXALIPLATIN [Suspect]
     Active Substance: OXALIPLATIN
     Indication: Primary mediastinal large B-cell lymphoma
     Dosage: 100 MG/M?
     Route: 042
     Dates: start: 20220816, end: 202210

REACTIONS (2)
  - Keratitis [Not Recovered/Not Resolved]
  - Dry eye [Not Recovered/Not Resolved]

NARRATIVE: CASE EVENT DATE: 20220901
